FAERS Safety Report 17926194 (Version 2)
Quarter: 2020Q2

REPORT INFORMATION
  Report Type: Report from Study
  Country: US (occurrence: US)
  Receive Date: 20200623
  Receipt Date: 20200626
  Transmission Date: 20200714
  Serious: Yes (Hospitalization)
  Sender: FDA-Public Use
  Company Number: US-ROCHE-2622950

PATIENT
  Age: 58 Year
  Sex: Female
  Weight: 70.2 kg

DRUGS (6)
  1. ATEZOLIZUMAB. [Suspect]
     Active Substance: ATEZOLIZUMAB
     Indication: HER2 NEGATIVE BREAST CANCER
     Dosage: ON DAYS 1 AND 15 OF EACH 28-DAY CYCLE?ON 04/JUN/2020, SHE RECEIVED THE MOST RECENT DOSE 840 MG PRIOR
     Route: 042
     Dates: start: 20200507
  2. ABEMACICLIB [Suspect]
     Active Substance: ABEMACICLIB
     Indication: HER2 NEGATIVE BREAST CANCER
     Dosage: ON 12/JUN/2020,S HE RECEIVED THE MOST RECENT DOSE 100 MG PRIOR TO SAE ONSET
     Route: 048
     Dates: start: 20200507
  3. MELOXICAM. [Concomitant]
     Active Substance: MELOXICAM
     Indication: OSTEOARTHRITIS
     Route: 048
  4. VICODIN [Concomitant]
     Active Substance: ACETAMINOPHEN\HYDROCODONE BITARTRATE
     Indication: OSTEOARTHRITIS
     Dosage: PRN (AS NEEDED)
     Route: 048
  5. LISINOPRIL. [Concomitant]
     Active Substance: LISINOPRIL
     Indication: HYPERTENSION
     Route: 048
  6. FULVESTRANT. [Suspect]
     Active Substance: FULVESTRANT
     Indication: HER2 NEGATIVE BREAST CANCER
     Dosage: ON DAYS 1 AND 15 OF CYCLE 1 AND THEREAFTER ON DAY 1 OF EACH 28-DAY CYCLE.?ON 04/JUN/2020, SHE RECEIV
     Route: 030
     Dates: start: 20200507

REACTIONS (1)
  - Myocarditis [Not Recovered/Not Resolved]

NARRATIVE: CASE EVENT DATE: 20200612
